FAERS Safety Report 5919464-7 (Version None)
Quarter: 2008Q4

REPORT INFORMATION
  Report Type: 
  Country: None (occurrence: None)
  Receive Date: 20081015
  Receipt Date: 20081013
  Transmission Date: 20090506
  Serious: Yes (Hospitalization)
  Sender: FDA-Public Use
  Company Number: PHEH1999US04580

PATIENT
  Sex: Male
  Weight: 140 kg

DRUGS (3)
  1. MYCOPHENOLATE MOFETIL [Suspect]
     Dosage: 1 G, BID
     Route: 048
     Dates: start: 19990928, end: 19991005
  2. NEORAL [Suspect]
     Route: 048
     Dates: start: 19990928
  3. MEDROL [Suspect]
     Route: 048
     Dates: start: 19990927

REACTIONS (4)
  - DUODENITIS [None]
  - GASTRITIS [None]
  - OESOPHAGEAL CANDIDIASIS [None]
  - OESOPHAGITIS [None]
